FAERS Safety Report 5520549-8 (Version None)
Quarter: 2007Q4

REPORT INFORMATION
  Report Type: 
  Country: None (occurrence: None)
  Receive Date: 20071119
  Receipt Date: 20071106
  Transmission Date: 20080405
  Serious: Yes (Other)
  Sender: FDA-Public Use
  Company Number: US-PFIZER INC-2007077727

PATIENT
  Sex: Female
  Weight: 68.9 kg

DRUGS (14)
  1. CHANTIX [Suspect]
     Indication: SMOKING CESSATION THERAPY
     Route: 048
  2. LAMICTAL [Suspect]
     Indication: DEPRESSION
  3. ADVAIR DISKUS 100/50 [Concomitant]
  4. ASPIRIN [Concomitant]
  5. CELEXA [Concomitant]
  6. COMBIVENT [Concomitant]
  7. DITROPAN [Concomitant]
  8. OXYCONTIN [Concomitant]
  9. PEPCID [Concomitant]
  10. TRAZODONE HCL [Concomitant]
  11. KLONOPIN [Concomitant]
  12. FOLIC ACID [Concomitant]
  13. OTHER HYPNOTICS AND SEDATIVES [Concomitant]
  14. VALIUM [Concomitant]

REACTIONS (13)
  - ABASIA [None]
  - ABNORMAL DREAMS [None]
  - ACTIVITIES OF DAILY LIVING IMPAIRED [None]
  - CONSTIPATION [None]
  - DECREASED APPETITE [None]
  - DEPRESSION [None]
  - HEADACHE [None]
  - INSOMNIA [None]
  - NAUSEA [None]
  - NERVOUSNESS [None]
  - SMOKER [None]
  - SOMNOLENCE [None]
  - VOMITING [None]
